FAERS Safety Report 4866762-4 (Version None)
Quarter: 2005Q4

REPORT INFORMATION
  Report Type: 
  Country: None (occurrence: None)
  Receive Date: 20051221
  Receipt Date: 20051208
  Transmission Date: 20060501
  Serious: Yes (Other)
  Sender: FDA-Public Use
  Company Number: 2005166457

PATIENT
  Age: 17 Year
  Sex: Female

DRUGS (1)
  1. VFEND [Suspect]
     Indication: ASPERGILLOSIS

REACTIONS (4)
  - OBSESSIVE-COMPULSIVE DISORDER [None]
  - PULMONARY OEDEMA [None]
  - RESPIRATORY FAILURE [None]
  - VISUAL FIELD DEFECT [None]
